FAERS Safety Report 9817028 (Version 1)
Quarter: 2014Q1

REPORT INFORMATION
  Report Type: Spontaneous
  Country: US (occurrence: US)
  Receive Date: 20140114
  Receipt Date: 20140114
  Transmission Date: 20141002
  Serious: No
  Sender: FDA-Public Use
  Company Number: US-BIOGENIDEC-2014BI000187

PATIENT
  Sex: Female

DRUGS (4)
  1. TECFIDERA [Suspect]
     Indication: MULTIPLE SCLEROSIS
     Route: 048
     Dates: start: 20131025
  2. DIAZEPAM [Concomitant]
  3. FENTANYL [Concomitant]
  4. HYDROCODONE-ACETAMINOPHEN [Concomitant]

REACTIONS (1)
  - Headache [Unknown]
